FAERS Safety Report 14709251 (Version 3)
Quarter: 2018Q2

REPORT INFORMATION
  Report Type: Report from Study
  Country: US (occurrence: US)
  Receive Date: 20180403
  Receipt Date: 20180621
  Transmission Date: 20180711
  Serious: Yes (Other)
  Sender: FDA-Public Use
  Company Number: PHEH2018US012643

PATIENT
  Age: 21 Year
  Sex: Male

DRUGS (1)
  1. ILARIS [Suspect]
     Active Substance: CANAKINUMAB
     Indication: CRYOPYRIN ASSOCIATED PERIODIC SYNDROME
     Dosage: 150 MG, Q6WEEKS
     Route: 058

REACTIONS (6)
  - Arthralgia [Unknown]
  - Ill-defined disorder [Unknown]
  - Condition aggravated [Recovering/Resolving]
  - Pain [Unknown]
  - Musculoskeletal discomfort [Unknown]
  - Cryopyrin associated periodic syndrome [Recovering/Resolving]

NARRATIVE: CASE EVENT DATE: 20180426
